FAERS Safety Report 7262237-6 (Version None)
Quarter: 2011Q1

REPORT INFORMATION
  Report Type: 
  Country: None (occurrence: None)
  Receive Date: 20110130
  Receipt Date: 20101124
  Transmission Date: 20110831
  Serious: No
  Sender: FDA-Public Use
  Company Number: US-ABBOTT-10P-163-0687697-00

PATIENT
  Age: 36 Year
  Sex: Female

DRUGS (8)
  1. PRILOSEC [Concomitant]
     Indication: GASTROOESOPHAGEAL REFLUX DISEASE
  2. HUMIRA [Suspect]
     Indication: CROHN'S DISEASE
     Dosage: 160 MG LOADING DOSE
     Dates: start: 20101111, end: 20101111
  3. HUMIRA [Suspect]
  4. MAGNESIUM [Concomitant]
     Indication: BLOOD MAGNESIUM DECREASED
  5. HUMIRA [Suspect]
     Dosage: 80 MG LOADING DOSE
     Dates: start: 20101124, end: 20101124
  6. CELEXA [Concomitant]
     Indication: DEPRESSION
  7. CALCIUM WITH VITAMIN D [Concomitant]
     Indication: PRODUCT USED FOR UNKNOWN INDICATION
  8. POTASSIUM CHLORIDE [Concomitant]
     Indication: BLOOD POTASSIUM DECREASED

REACTIONS (1)
  - HEADACHE [None]
